FAERS Safety Report 7712313 (Version 3)
Quarter: 2012Q4

REPORT INFORMATION
  Report Type: Spontaneous
  Country: US (occurrence: None)
  Receive Date: 20101119
  Receipt Date: 20121120
  Transmission Date: 20130627
  Serious: Yes (Other)
  Sender: FDA-Public Use
  Company Number: TPA2010A05723

PATIENT
  Age: 66 Year
  Sex: Male
  Weight: 74.84 kg

DRUGS (3)
  1. ACTOS [Suspect]
     Indication: GLUCOSE TOLERANCE IMPAIRED
     Dosage: 30 MG, 1 IN 1 D, PER ORAL
     Route: 048
     Dates: start: 20061209, end: 20101104
  2. ACEON [Concomitant]
  3. SIMVASTATIN [Concomitant]

REACTIONS (1)
  - BLADDER CANCER [None]
